FAERS Safety Report 6122294-7 (Version None)
Quarter: 2009Q1

REPORT INFORMATION
  Report Type: 
  Country: None (occurrence: None)
  Receive Date: 20090316
  Receipt Date: 20090316
  Transmission Date: 20090719
  Serious: No
  Sender: FDA-Public Use
  Company Number: None

PATIENT
  Age: 60 Year
  Sex: Female
  Weight: 72.5755 kg

DRUGS (2)
  1. ALBUTEROL [Suspect]
     Indication: COUGH
     Dosage: ONE TWICE DAILY
  2. ALBUTEROL [Suspect]
     Indication: PYREXIA
     Dosage: ONE TWICE DAILY

REACTIONS (6)
  - AGGRESSION [None]
  - COUGH [None]
  - FEELING ABNORMAL [None]
  - INSOMNIA [None]
  - PALPITATIONS [None]
  - TREMOR [None]
